FAERS Safety Report 7043507-3 (Version None)
Quarter: 2010Q4

REPORT INFORMATION
  Report Type: 
  Country: None (occurrence: None)
  Receive Date: 20101013
  Receipt Date: 20101008
  Transmission Date: 20110411
  Serious: Yes (Other)
  Sender: FDA-Public Use
  Company Number: A0614327E

PATIENT
  Sex: Female
  Weight: 72.8 kg

DRUGS (3)
  1. LAPATINIB [Suspect]
     Indication: BREAST CANCER METASTATIC
     Dosage: 500MG PER DAY
     Route: 048
     Dates: start: 20060720
  2. DOCETAXEL [Suspect]
     Indication: BREAST CANCER METASTATIC
     Dosage: 100MGM2 CYCLIC
     Route: 042
     Dates: start: 20060720
  3. TRASTUZUMAB [Suspect]
     Indication: BREAST CANCER METASTATIC
     Dosage: 4MGK WEEKLY
     Route: 042
     Dates: start: 20060720

REACTIONS (1)
  - NEUTROPENIA [None]
